FAERS Safety Report 13638868 (Version 1)
Quarter: 2017Q2

REPORT INFORMATION
  Report Type: Spontaneous
  Country: US (occurrence: US)
  Receive Date: 20170609
  Receipt Date: 20170609
  Transmission Date: 20170830
  Serious: Yes (Hospitalization)
  Sender: FDA-Public Use
  Company Number: US-ABBVIE-17P-163-2002281-00

PATIENT
  Age: 71 Year
  Sex: Male
  Weight: 79.45 kg

DRUGS (1)
  1. ANDROGEL [Suspect]
     Active Substance: TESTOSTERONE
     Indication: HYPOGONADISM
     Dosage: 2 PUMPS DAILY
     Route: 061
     Dates: start: 201702

REACTIONS (2)
  - Pulmonary thrombosis [Recovering/Resolving]
  - Blood testosterone decreased [Recovering/Resolving]

NARRATIVE: CASE EVENT DATE: 20170521
